FAERS Safety Report 14612443 (Version 1)
Quarter: 2018Q1

REPORT INFORMATION
  Report Type: Spontaneous
  Country: US (occurrence: US)
  Receive Date: 20180308
  Receipt Date: 20180308
  Transmission Date: 20180509
  Serious: No
  Sender: FDA-Public Use
  Company Number: US-VIIV HEALTHCARE LIMITED-US2018038401

PATIENT
  Sex: Male

DRUGS (4)
  1. JULUCA [Suspect]
     Active Substance: DOLUTEGRAVIR SODIUM\RILPIVIRINE HYDROCHLORIDE
     Indication: HIV INFECTION
  2. INTELENCE [Concomitant]
     Active Substance: ETRAVIRINE
  3. ISENTRESS [Concomitant]
     Active Substance: RALTEGRAVIR POTASSIUM
  4. SELZENTRY [Concomitant]
     Active Substance: MARAVIROC

REACTIONS (1)
  - Feeling abnormal [Recovered/Resolved]
